FAERS Safety Report 20762955 (Version 3)
Quarter: 2023Q2

REPORT INFORMATION
  Report Type: Other
  Country: BE (occurrence: None)
  Receive Date: 20220428
  Receipt Date: 20230426
  Transmission Date: 20230721
  Serious: No
  Sender: FDA-Public Use
  Company Number: BE-ROCHE-3084609

PATIENT
  Age: 39 Year
  Sex: Female

DRUGS (13)
  1. OCRELIZUMAB [Suspect]
     Active Substance: OCRELIZUMAB
     Indication: Relapsing-remitting multiple sclerosis
     Dosage: SUBSEQUENT DOSE RECEIVED ON 01/OCT/2019
     Route: 042
     Dates: start: 20190917
  2. OCRELIZUMAB [Suspect]
     Active Substance: OCRELIZUMAB
     Route: 042
     Dates: start: 20200421, end: 20200421
  3. OCRELIZUMAB [Suspect]
     Active Substance: OCRELIZUMAB
     Route: 042
     Dates: start: 20201102, end: 20201102
  4. OCRELIZUMAB [Suspect]
     Active Substance: OCRELIZUMAB
     Route: 042
     Dates: start: 20210503, end: 20210503
  5. OCRELIZUMAB [Suspect]
     Active Substance: OCRELIZUMAB
     Route: 042
     Dates: start: 20211027, end: 20211027
  6. OCRELIZUMAB [Suspect]
     Active Substance: OCRELIZUMAB
     Route: 042
     Dates: start: 20220425, end: 20220425
  7. OCRELIZUMAB [Suspect]
     Active Substance: OCRELIZUMAB
     Route: 042
     Dates: start: 20221103, end: 20221103
  8. MIRABEGRON [Concomitant]
     Active Substance: MIRABEGRON
     Dosage: ONGOING YES
     Route: 048
     Dates: start: 201310
  9. BISOPROLOL [Concomitant]
     Active Substance: BISOPROLOL
     Dosage: ONGOING:YES
     Route: 048
     Dates: start: 201501
  10. CHOLECALCIFEROL [Concomitant]
     Active Substance: CHOLECALCIFEROL
     Dosage: DRUG DOSE FIRST ADMINISTERED IS 1 AMPULE ;ONGOING: YES
     Route: 048
     Dates: start: 201501
  11. FLUOXETINE [Concomitant]
     Active Substance: FLUOXETINE HYDROCHLORIDE
     Dosage: ONGOING:YES
     Route: 048
     Dates: start: 201806
  12. TRAZODONE [Concomitant]
     Active Substance: TRAZODONE HYDROCHLORIDE
     Dosage: ONGOING:YES
     Route: 048
     Dates: start: 201806
  13. SEDISTRESS [Concomitant]
     Dosage: UNIT 1 TABLET
     Route: 048
     Dates: start: 201806

REACTIONS (1)
  - COVID-19 [Recovered/Resolved]

NARRATIVE: CASE EVENT DATE: 20220318
